FAERS Safety Report 10169414 (Version 1)
Quarter: 2014Q2

REPORT INFORMATION
  Report Type: Spontaneous
  Country: US (occurrence: US)
  Receive Date: 20140513
  Receipt Date: 20140513
  Transmission Date: 20141212
  Serious: No
  Sender: FDA-Public Use
  Company Number: US-PFIZER INC-2014128914

PATIENT
  Sex: 0

DRUGS (2)
  1. SULFASALAZINE [Suspect]
     Indication: RHEUMATOID ARTHRITIS
     Dosage: 500 MG, 2X/DAY
     Dates: end: 2014
  2. SULFASALAZINE [Suspect]
     Dosage: 500 MG, 2X/DAY
     Dates: start: 20140506, end: 20140507

REACTIONS (8)
  - Drug dose omission [Recovering/Resolving]
  - Product odour abnormal [Unknown]
  - Dizziness [Not Recovered/Not Resolved]
  - Malaise [Recovering/Resolving]
  - Malaise [Recovering/Resolving]
  - Feeling abnormal [Recovering/Resolving]
  - Nausea [Recovering/Resolving]
  - Feeling hot [Recovering/Resolving]
